FAERS Safety Report 9516196 (Version 2)
Quarter: 2014Q1

REPORT INFORMATION
  Report Type: Spontaneous
  Country: US (occurrence: None)
  Receive Date: 20130305
  Receipt Date: 20140306
  Transmission Date: 20141002
  Serious: Yes (Other)
  Sender: FDA-Public Use
  Company Number: 163-21880-12114116

PATIENT
  Age: 81 Year
  Sex: Female

DRUGS (3)
  1. REVLIMID [Suspect]
     Indication: 5Q MINUS SYNDROME
     Dosage: 5 MG, 1 IN 1 D, PO
     Route: 048
     Dates: start: 20120328
  2. WARFARIN (WARFARIN) [Concomitant]
  3. NEOM/POLYMXB/DEX (OINTMENT) [Concomitant]

REACTIONS (4)
  - Cataract [None]
  - Infection [None]
  - Diarrhoea [None]
  - Contusion [None]
